FAERS Safety Report 6544915-7 (Version None)
Quarter: 2010Q1

REPORT INFORMATION
  Report Type: 
  Country: None (occurrence: None)
  Receive Date: 20100121
  Receipt Date: 20100113
  Transmission Date: 20100710
  Serious: Yes (Hospitalization)
  Sender: FDA-Public Use
  Company Number: FR-PURDUE-GBR-2010-0006022

PATIENT
  Sex: Male

DRUGS (14)
  1. OXYCONTIN [Suspect]
     Indication: DRUG USE FOR UNKNOWN INDICATION
     Dosage: 5 MG, BID
     Route: 048
     Dates: start: 20091222, end: 20091227
  2. DI-HYDAN [Concomitant]
     Dosage: 100 MG, BID
  3. LAMICTAL [Concomitant]
     Dosage: 50 MG, BID
  4. LEVOTHYROXINE SODIUM [Concomitant]
     Dosage: 250 MG, DAILY
  5. XATRAL                             /00975301/ [Concomitant]
     Dosage: 10 MG, DAILY
  6. PROSCAR [Concomitant]
     Dosage: 5 MG, DAILY
  7. UVEDOSE [Concomitant]
     Dosage: 1 VIAL, DAY 20 OF EACH MONTH
  8. MAG 2 [Concomitant]
     Dosage: 1 VIAL, BID
  9. LOXEN [Concomitant]
     Dosage: 50 MG, BID
  10. ATARAX [Concomitant]
     Dosage: 25 MG, TID
  11. PARACETAMOL [Concomitant]
     Dosage: 1 G, QID
  12. CALCIDIA [Concomitant]
     Dosage: UNK
  13. TARDYFERON                         /00023503/ [Concomitant]
     Dosage: UNK
  14. LASIX [Concomitant]
     Dosage: 20 MG, DAILY

REACTIONS (1)
  - EPILEPSY [None]
